FAERS Safety Report 8950587 (Version 2)
Quarter: 2013Q1

REPORT INFORMATION
  Report Type: Spontaneous
  Country: US (occurrence: US)
  Receive Date: 20121207
  Receipt Date: 20130110
  Transmission Date: 20140127
  Serious: No
  Sender: FDA-Public Use
  Company Number: US-009507513-1212USA002029

PATIENT
  Age: 68 None
  Sex: Female

DRUGS (1)
  1. ASMANEX TWISTHALER [Suspect]
     Indication: ASTHMA
     Dosage: ONE PUFF/ONCE DAILY
     Route: 055

REACTIONS (4)
  - Musculoskeletal stiffness [Not Recovered/Not Resolved]
  - Candida infection [Not Recovered/Not Resolved]
  - Lymph node pain [Not Recovered/Not Resolved]
  - Oropharyngeal pain [Not Recovered/Not Resolved]
